FAERS Safety Report 17544813 (Version 4)
Quarter: 2020Q2

REPORT INFORMATION
  Report Type: Spontaneous
  Country: DE (occurrence: DE)
  Receive Date: 20200316
  Receipt Date: 20200406
  Transmission Date: 20200713
  Serious: Yes (Disabling, Congenital Anomaly, Other)
  Sender: FDA-Public Use
  Company Number: DE-PFIZER INC-2020109887

PATIENT
  Sex: Female
  Weight: 3.43 kg

DRUGS (1)
  1. CYTOTEC [Suspect]
     Active Substance: MISOPROSTOL
     Indication: LABOUR INDUCTION
     Dosage: 25 UG, EVERY 2 HOURS
     Route: 064
     Dates: start: 20161010, end: 20161011

REACTIONS (9)
  - Movement disorder [Recovered/Resolved with Sequelae]
  - Disability [Recovered/Resolved with Sequelae]
  - Muscle spasticity [Recovered/Resolved with Sequelae]
  - Hypotonia neonatal [Recovered/Resolved with Sequelae]
  - Encephalopathy neonatal [Recovered/Resolved with Sequelae]
  - Developmental delay [Recovered/Resolved with Sequelae]
  - Neonatal epileptic seizure [Recovered/Resolved with Sequelae]
  - Psychogenic movement disorder [Recovered/Resolved with Sequelae]
  - Foetal exposure during pregnancy [Unknown]
